FAERS Safety Report 8981475 (Version 1)
Quarter: 2012Q4

REPORT INFORMATION
  Report Type: 
  Country: US (occurrence: US)
  Receive Date: 20121221
  Receipt Date: 20121221
  Transmission Date: 20130627
  Serious: Yes (Hospitalization)
  Sender: FDA-Public Use
  Company Number: US-BAYER-2012-128497

PATIENT
  Age: 43 Year
  Sex: Female

DRUGS (12)
  1. YAZ [Suspect]
  2. GIANVI [Suspect]
  3. PAXIL [Concomitant]
     Dosage: 20 mg, UNK
  4. KLONOPIN [Concomitant]
     Dosage: 0.5 mg, UNK
  5. PROVENTIL [Concomitant]
  6. CYMBALTA [Concomitant]
     Dosage: 60 mg, UNK
  7. PAROXETINE [Concomitant]
     Dosage: 25 mg, UNK
  8. AMOXICILLIN TRIHYDRATE/CLAVULANATE POTASSIUM [Concomitant]
     Dosage: 125 mg, UNK
  9. ACETAMINOPHEN + COD. PHOSP. [Concomitant]
  10. AMOXICILLIN [Concomitant]
     Dosage: 500 mg, UNK
  11. MOTRIN [Concomitant]
  12. BENZODIAZEPINE [Concomitant]

REACTIONS (2)
  - Deep vein thrombosis [Recovering/Resolving]
  - Deep vein thrombosis [Recovering/Resolving]
